FAERS Safety Report 5807154-0 (Version None)
Quarter: 2008Q3

REPORT INFORMATION
  Report Type: 
  Country: None (occurrence: None)
  Receive Date: 20080711
  Receipt Date: 20080709
  Transmission Date: 20090109
  Serious: Yes (Hospitalization)
  Sender: FDA-Public Use
  Company Number: FR-AVENTIS-200811855FR

PATIENT
  Age: 78 Year
  Sex: Male

DRUGS (8)
  1. LOVENOX [Suspect]
     Route: 058
     Dates: start: 20080420, end: 20080425
  2. KARDEGIC                           /00002703/ [Concomitant]
     Route: 048
  3. PREVISCAN                          /00789001/ [Concomitant]
     Route: 048
     Dates: end: 20080401
  4. PREVISCAN                          /00789001/ [Concomitant]
     Route: 048
     Dates: start: 20080401
  5. SIMVASTATIN [Concomitant]
  6. TRIATEC                            /00885601/ [Concomitant]
  7. CORDARONE [Concomitant]
     Indication: ARRHYTHMIA
  8. FUROSEMIDE [Concomitant]

REACTIONS (4)
  - ANOREXIA [None]
  - DRY THROAT [None]
  - GENERAL PHYSICAL HEALTH DETERIORATION [None]
  - HEAD DISCOMFORT [None]
